FAERS Safety Report 6577056-3 (Version None)
Quarter: 2010Q1

REPORT INFORMATION
  Report Type: 
  Country: None (occurrence: None)
  Receive Date: 20100210
  Receipt Date: 20100204
  Transmission Date: 20100710
  Serious: Yes (Other)
  Sender: FDA-Public Use
  Company Number: JP-BRISTOL-MYERS SQUIBB COMPANY-14965990

PATIENT
  Age: 81 Year
  Sex: Female

DRUGS (2)
  1. PARAPLATIN [Suspect]
     Indication: PERITONEAL MESOTHELIOMA MALIGNANT
     Route: 041
  2. PEMETREXED DISODIUM [Suspect]
     Indication: PERITONEAL MESOTHELIOMA MALIGNANT
     Dosage: INJECTION
     Route: 041

REACTIONS (1)
  - NEPHROPATHY TOXIC [None]
